FAERS Safety Report 5041746-4 (Version None)
Quarter: 2006Q2

REPORT INFORMATION
  Report Type: 
  Country: None (occurrence: None)
  Receive Date: 20060630
  Receipt Date: 20060615
  Transmission Date: 20061013
  Serious: Yes (Hospitalization)
  Sender: FDA-Public Use
  Company Number: 2005172320

PATIENT
  Age: 81 Year
  Sex: Male

DRUGS (9)
  1. SUTENT [Suspect]
     Indication: METASTATIC RENAL CELL CARCINOMA
     Dosage: 50 MG (50 MG, 1 IN 1 D); ORAL
     Route: 048
     Dates: start: 20051129
  2. HYZAAR [Concomitant]
  3. HYDROCHLOROTHIAZIDE [Concomitant]
  4. AVANDIA [Concomitant]
  5. AMARYL [Concomitant]
  6. TOPROL-XL [Concomitant]
  7. SYNTHROID [Concomitant]
  8. TAMSULOSIN HYDROCHLORIDE [Concomitant]
  9. PROSCAR [Concomitant]

REACTIONS (8)
  - ANXIETY [None]
  - ASTHENIA [None]
  - DEHYDRATION [None]
  - ELECTROCARDIOGRAM T WAVE ABNORMAL [None]
  - EXOSTOSIS [None]
  - FAILURE TO THRIVE [None]
  - METASTASES TO LUNG [None]
  - PHARYNGITIS [None]
